FAERS Safety Report 7392079-2 (Version None)
Quarter: 2011Q2

REPORT INFORMATION
  Report Type: 
  Country: None (occurrence: None)
  Receive Date: 20110404
  Receipt Date: 20110324
  Transmission Date: 20111010
  Serious: Yes (Hospitalization)
  Sender: FDA-Public Use
  Company Number: A0772843A

PATIENT
  Age: 42 Year
  Sex: Female
  Weight: 104.5 kg

DRUGS (11)
  1. OXYBUTYNIN [Concomitant]
  2. GABAPENTIN [Concomitant]
  3. VASOTEC [Concomitant]
  4. HYDROCODONE BITARTRATE + ACETAMINOPHEN [Concomitant]
  5. NEXIUM [Concomitant]
  6. DIPHENHYDRAMINE HCL [Concomitant]
  7. PROMETHAZINE [Concomitant]
  8. ENALAPRIL MALEATE [Concomitant]
  9. AVANDIA [Suspect]
     Indication: DIABETES MELLITUS
     Route: 048
     Dates: start: 20040310, end: 20061101
  10. NYSTATIN [Concomitant]
  11. INSULIN [Concomitant]

REACTIONS (1)
  - CEREBROVASCULAR ACCIDENT [None]
